FAERS Safety Report 11754202 (Version 1)
Quarter: 2015Q4

REPORT INFORMATION
  Report Type: Spontaneous
  Country: US (occurrence: US)
  Receive Date: 20151119
  Receipt Date: 20151119
  Transmission Date: 20160304
  Serious: No
  Sender: FDA-Public Use
  Company Number: US-BAYER-2015-468326

PATIENT
  Age: 56 Year
  Sex: Female

DRUGS (1)
  1. CLIMARA [Suspect]
     Active Substance: ESTRADIOL
     Dosage: 0.05 MG, OW
     Route: 062

REACTIONS (5)
  - Drug ineffective [None]
  - Hyperhidrosis [None]
  - Product adhesion issue [None]
  - Fatigue [None]
  - Somnolence [None]
